FAERS Safety Report 24122619 (Version 2)
Quarter: 2024Q4

REPORT INFORMATION
  Report Type: Report from Study
  Country: DE (occurrence: DE)
  Receive Date: 20240723
  Receipt Date: 20241225
  Transmission Date: 20250115
  Serious: Yes (Life-Threatening)
  Sender: SAMSUNG BIOEPIS
  Company Number: DE-SAMSUNG BIOEPIS-SB-2024-21747

PATIENT
  Age: 53 Year
  Sex: Female

DRUGS (2)
  1. ETANERCEPT [Suspect]
     Active Substance: ETANERCEPT
     Indication: Rheumatoid arthritis
     Dates: end: 202407
  2. METHOTREXATE [Suspect]
     Active Substance: METHOTREXATE
     Indication: Rheumatoid arthritis

REACTIONS (2)
  - Squamous cell carcinoma of the cervix [Not Recovered/Not Resolved]
  - Off label use [Unknown]

NARRATIVE: CASE EVENT DATE: 20240401
